FAERS Safety Report 5179743-0 (Version None)
Quarter: 2006Q4

REPORT INFORMATION
  Report Type: 
  Country: None (occurrence: None)
  Receive Date: 20061211
  Receipt Date: 20061126
  Transmission Date: 20070319
  Serious: Yes (Other)
  Sender: FDA-Public Use
  Company Number: 2006145377

PATIENT
  Sex: Female

DRUGS (1)
  1. SOLU-MEDROL [Suspect]
     Indication: HYPERSENSITIVITY
     Dosage: 40 MG (40 MG, 1 IN 1 D)

REACTIONS (1)
  - DEATH [None]
